FAERS Safety Report 5479912-6 (Version None)
Quarter: 2007Q4

REPORT INFORMATION
  Report Type: 
  Country: None (occurrence: None)
  Receive Date: 20071008
  Receipt Date: 20071005
  Transmission Date: 20080405
  Serious: Yes (Hospitalization)
  Sender: FDA-Public Use
  Company Number: AU-BOEHRINGER INGELHEIM PHARMACEUTICALS, INC.-2007-BP-21828AU

PATIENT
  Sex: Female

DRUGS (6)
  1. MOBIC [Suspect]
     Route: 048
  2. PLAVIX [Suspect]
     Route: 048
  3. ASPIRIN [Suspect]
     Route: 048
  4. AVAPRO [Concomitant]
     Route: 048
  5. LANOXIN [Concomitant]
     Route: 048
  6. NORVASC [Concomitant]
     Route: 048

REACTIONS (2)
  - HAEMATOMA [None]
  - HAEMORRHAGE [None]
